FAERS Safety Report 10611314 (Version 1)
Quarter: 2014Q4

REPORT INFORMATION
  Report Type: Spontaneous
  Country: US (occurrence: US)
  Receive Date: 20141126
  Receipt Date: 20141126
  Transmission Date: 20150529
  Serious: Yes (Other)
  Sender: FDA-Public Use
  Company Number: US-GLAXOSMITHKLINE-US2014026093

PATIENT
  Age: 50 Year
  Sex: Male

DRUGS (1)
  1. WALGREEN NICOTINE [Suspect]
     Active Substance: NICOTINE
     Indication: SMOKING CESSATION THERAPY
     Dosage: 21 MG, QOD
     Route: 062
     Dates: start: 20141115, end: 20141117

REACTIONS (8)
  - Visual field defect [Not Recovered/Not Resolved]
  - Eye disorder [Not Recovered/Not Resolved]
  - Malaise [Not Recovered/Not Resolved]
  - Eye swelling [Not Recovered/Not Resolved]
  - Vision blurred [Not Recovered/Not Resolved]
  - Drug administration error [Unknown]
  - Eye haemorrhage [Not Recovered/Not Resolved]
  - Dizziness [Not Recovered/Not Resolved]

NARRATIVE: CASE EVENT DATE: 20141115
